FAERS Safety Report 8298738-1 (Version None)
Quarter: 2012Q2

REPORT INFORMATION
  Report Type: 
  Country: None (occurrence: None)
  Receive Date: 20120419
  Receipt Date: 20120410
  Transmission Date: 20120825
  Serious: Yes (Hospitalization)
  Sender: FDA-Public Use
  Company Number: US-JNJFOC-20120404670

PATIENT
  Sex: Female
  Weight: 81.65 kg

DRUGS (3)
  1. REMICADE [Suspect]
     Indication: RHEUMATOID ARTHRITIS
     Route: 042
  2. VICODIN [Suspect]
     Indication: PROCEDURAL PAIN
     Route: 065
     Dates: start: 20120401
  3. UNSPECIFED MEDICATIONS [Concomitant]
     Route: 065

REACTIONS (3)
  - INTERVERTEBRAL DISC PROTRUSION [None]
  - FEELING ABNORMAL [None]
  - PROCEDURAL PAIN [None]
